FAERS Safety Report 6156168-2 (Version None)
Quarter: 2009Q2

REPORT INFORMATION
  Report Type: 
  Country: None (occurrence: None)
  Receive Date: 20090415
  Receipt Date: 20090409
  Transmission Date: 20091009
  Serious: No
  Sender: FDA-Public Use
  Company Number: US-B.I. PHARMACEUTICALS,INC./RIDGEFIELD-2009-BP-04566BP

PATIENT
  Sex: Female

DRUGS (6)
  1. SPIRIVA [Suspect]
     Indication: ASTHMA
     Dates: start: 20060101
  2. SPIRIVA [Suspect]
     Indication: DYSPNOEA
  3. ALBUTEROL SULFATE [Concomitant]
     Indication: DYSPNOEA
  4. ALBUTEROL SULFATE [Concomitant]
     Indication: ASTHMA
  5. COMBIVENT [Concomitant]
     Indication: DYSPNOEA
  6. COMBIVENT [Concomitant]
     Indication: ASTHMA

REACTIONS (1)
  - ADVERSE DRUG REACTION [None]
